FAERS Safety Report 8884331 (Version 2)
Quarter: 2012Q4

REPORT INFORMATION
  Report Type: 
  Country: DE (occurrence: DE)
  Receive Date: 20121104
  Receipt Date: 20121107
  Transmission Date: 20130627
  Serious: Yes (Death)
  Sender: FDA-Public Use
  Company Number: DE-BAYER-2012-113539

PATIENT
  Age: 87 Year
  Sex: Male

DRUGS (12)
  1. ACETYLSALICYLIC ACID({=100 MG) [Suspect]
     Indication: MYOCARDIAL INFARCTION
     Dosage: 100 mg, QD
  2. CITALOPRAM [Interacting]
     Indication: PANIC DISORDER
     Dosage: 20 mg, QD
  3. OLANZAPINE [Concomitant]
     Dosage: 5 mg, QD
  4. ZOPICLONE [Concomitant]
     Dosage: 7.5 mg, QD
  5. NITRENDIPINE [Concomitant]
     Dosage: 20 mg, QD
  6. BISOPROLOL [Concomitant]
     Dosage: 5 mg, QD
  7. LISINOPRIL [Concomitant]
     Dosage: 20 mg, QD
  8. HYDROCHLOROTHIAZIDE [Concomitant]
     Dosage: 12.5 mg, QD
  9. BUPRENORPHINE [Concomitant]
     Dosage: 20 ?g, Q1HR
     Route: 062
  10. VITAMIN B12 [Concomitant]
     Dosage: 1000 ?g, OW
  11. PREGABALIN [Concomitant]
     Dosage: 150 mg, ONCE
  12. LACTULOSE [Concomitant]
     Dosage: 10 ml, QD

REACTIONS (4)
  - Duodenal ulcer haemorrhage [Fatal]
  - Myocardial infarction [Fatal]
  - Haemorrhagic anaemia [Fatal]
  - Hypotension [Fatal]
